FAERS Safety Report 6652474-3 (Version None)
Quarter: 2010Q1

REPORT INFORMATION
  Report Type: 
  Country: None (occurrence: None)
  Receive Date: 20100323
  Receipt Date: 20100316
  Transmission Date: 20100710
  Serious: Yes (Death, Hospitalization)
  Sender: FDA-Public Use
  Company Number: 2010SP016053

PATIENT
  Age: 67 Year
  Sex: Female

DRUGS (1)
  1. ORGARAN [Suspect]
     Indication: ANTICOAGULANT THERAPY
     Dosage: ;BID;UNK
     Dates: start: 20100226

REACTIONS (7)
  - CORONARY ARTERY BYPASS [None]
  - INTESTINAL PERFORATION [None]
  - PERITONITIS [None]
  - PLATELET AGGREGATION [None]
  - PNEUMONIA [None]
  - POST PROCEDURAL COMPLICATION [None]
  - RENAL FAILURE [None]
